FAERS Safety Report 11789132 (Version 2)
Quarter: 2016Q1

REPORT INFORMATION
  Report Type: Spontaneous
  Country: FR (occurrence: FR)
  Receive Date: 20151201
  Receipt Date: 20160215
  Transmission Date: 20160525
  Serious: Yes (Other)
  Sender: FDA-Public Use
  Company Number: FR-AUROBINDO-AUR-APL-2015-10759

PATIENT
  Age: 58 Year
  Sex: Male

DRUGS (6)
  1. AMBISOME [Suspect]
     Active Substance: AMPHOTERICIN B
     Indication: INFECTION
     Dosage: 300 MG, ONCE A DAY
     Route: 042
     Dates: start: 20150830, end: 20150831
  2. AMIKACINE                          /00391001/ [Suspect]
     Active Substance: AMIKACIN
     Indication: INFECTION
     Dosage: 2.5 G, ONCE A DAY
     Route: 042
     Dates: start: 20150830, end: 20150830
  3. VANCOMYCINE SANDOZ [Suspect]
     Active Substance: VANCOMYCIN
     Indication: INFECTION
     Dosage: 1 G, 3 TIMES A DAY
     Route: 042
     Dates: start: 20150821, end: 20150831
  4. FLUCONAZOLE CAPSULE, HARD 200MG [Suspect]
     Active Substance: FLUCONAZOLE
     Indication: INFECTION
     Dosage: 200 MG, TWO TIMES A DAY
     Route: 048
     Dates: start: 20150813, end: 20150830
  5. ZARZIO [Suspect]
     Active Substance: FILGRASTIM
     Indication: APLASTIC ANAEMIA
     Dosage: 1 UNK, DAILY
     Route: 042
     Dates: start: 20150828, end: 20150901
  6. PIPERACILLIN AND TAZOBACTAM [Suspect]
     Active Substance: PIPERACILLIN SODIUM\TAZOBACTAM SODIUM
     Indication: INFECTION
     Dosage: 4 G, 3 TIMES A DAY
     Route: 042
     Dates: start: 20150819, end: 20150830

REACTIONS (3)
  - Drug ineffective [Unknown]
  - Infection [Recovered/Resolved]
  - Dermatitis exfoliative [Recovered/Resolved]

NARRATIVE: CASE EVENT DATE: 20150831
